FAERS Safety Report 11938227 (Version 1)
Quarter: 2016Q1

REPORT INFORMATION
  Report Type: Spontaneous
  Country: US (occurrence: US)
  Receive Date: 20160122
  Receipt Date: 20160122
  Transmission Date: 20160526
  Serious: No
  Sender: FDA-Public Use
  Company Number: US-BAYER-2016-009424

PATIENT
  Age: 45 Year
  Sex: Female
  Weight: 86.17 kg

DRUGS (5)
  1. ALEVE [Suspect]
     Active Substance: NAPROXEN SODIUM
     Indication: DYSMENORRHOEA
     Dosage: 2 DF, PRN
     Route: 048
  2. IRON [Concomitant]
     Active Substance: IRON
  3. POTASSIUM [Concomitant]
     Active Substance: POTASSIUM
  4. FISH OIL [Concomitant]
     Active Substance: FISH OIL
  5. ALEVE [Suspect]
     Active Substance: NAPROXEN SODIUM
     Indication: ANTICOAGULANT THERAPY

REACTIONS (2)
  - Off label use [None]
  - Product use issue [None]
